FAERS Safety Report 6388968-8 (Version None)
Quarter: 2009Q4

REPORT INFORMATION
  Report Type: 
  Country: None (occurrence: None)
  Receive Date: 20091005
  Receipt Date: 20090930
  Transmission Date: 20100525
  Serious: Yes (Death, Hospitalization, Other)
  Sender: FDA-Public Use
  Company Number: US-AMGEN-US364923

PATIENT
  Sex: Female
  Weight: 86.7 kg

DRUGS (25)
  1. NPLATE [Suspect]
     Indication: IDIOPATHIC THROMBOCYTOPENIC PURPURA
     Dates: start: 20090508, end: 20090703
  2. NPLATE [Suspect]
     Dates: start: 20090515, end: 20090515
  3. NPLATE [Suspect]
     Dates: start: 20090522, end: 20090522
  4. NPLATE [Suspect]
     Dates: start: 20090529, end: 20090529
  5. NPLATE [Suspect]
     Dates: start: 20090604, end: 20090604
  6. NPLATE [Suspect]
     Dates: start: 20090612, end: 20090612
  7. NPLATE [Suspect]
     Dates: start: 20090619, end: 20090619
  8. NPLATE [Suspect]
     Dates: start: 20090626, end: 20090626
  9. NPLATE [Suspect]
     Dates: start: 20090703, end: 20090703
  10. PREDNISONE TAB [Concomitant]
     Dates: start: 20090401
  11. IMMUNOGLOBULINS [Concomitant]
     Dates: start: 20090513
  12. LEVOXYL [Concomitant]
     Dates: start: 20090326
  13. SIMVASTATIN [Concomitant]
  14. PREMARIN [Concomitant]
     Route: 067
     Dates: start: 20090604
  15. NEURONTIN [Concomitant]
  16. ACYCLOVIR [Concomitant]
  17. CALCIUM [Concomitant]
  18. TOPROL-XL [Concomitant]
  19. ZYTEC [Concomitant]
  20. DIOVAN [Concomitant]
  21. ZANTAC [Concomitant]
  22. BENADRYL [Concomitant]
  23. VITAMIN D [Concomitant]
  24. NORVASC [Concomitant]
  25. PROTONIX [Concomitant]

REACTIONS (16)
  - CEREBELLAR HAEMATOMA [None]
  - CHRONIC LYMPHOCYTIC LEUKAEMIA [None]
  - DRUG INEFFECTIVE [None]
  - EPISTAXIS [None]
  - FUNGAL OESOPHAGITIS [None]
  - GASTROINTESTINAL HAEMORRHAGE [None]
  - HAEMATEMESIS [None]
  - HAEMATURIA [None]
  - HEADACHE [None]
  - MUSCULAR WEAKNESS [None]
  - NAUSEA [None]
  - PAIN IN EXTREMITY [None]
  - PERONEAL NERVE PALSY [None]
  - PNEUMONIA FUNGAL [None]
  - THROMBOCYTOPENIA [None]
  - VOMITING [None]
